FAERS Safety Report 9437458 (Version 1)
Quarter: 2013Q3

REPORT INFORMATION
  Report Type: Spontaneous
  Country: FR (occurrence: None)
  Receive Date: 20130731
  Receipt Date: 20130731
  Transmission Date: 20140515
  Serious: Yes (Other)
  Sender: FDA-Public Use
  Company Number: NGX_01913_2013

PATIENT
  Age: 52 Year
  Sex: Male

DRUGS (2)
  1. QUTENZA [Suspect]
     Indication: PRODUCT USED FOR UNKNOWN INDICATION
     Dosage: (2 DF, [PATCH] TOPICAL]
     Route: 061
     Dates: start: 20130620, end: 20130620
  2. EMLA [Suspect]
     Indication: PRODUCT USED FOR UNKNOWN INDICATION
     Dosage: (DF CUTANEOUS)
     Dates: start: 20130620, end: 20130620

REACTIONS (3)
  - Panniculitis [None]
  - Feeling hot [None]
  - Erythema [None]
